FAERS Safety Report 13394279 (Version 1)
Quarter: 2017Q2

REPORT INFORMATION
  Report Type: Report from Study
  Country: IT (occurrence: IT)
  Receive Date: 20170402
  Receipt Date: 20170402
  Transmission Date: 20170830
  Serious: Yes (Hospitalization, Other)
  Sender: FDA-Public Use
  Company Number: IT-MYLANLABS-2017M1019581

PATIENT

DRUGS (8)
  1. BLOPRESID [Concomitant]
     Active Substance: CANDESARTAN CILEXETIL\HYDROCHLOROTHIAZIDE
     Indication: HYPERTENSION
     Dosage: UNK
  2. ASACOL [Concomitant]
     Active Substance: MESALAMINE
     Indication: DIVERTICULITIS
     Dosage: UNK
  3. LANSOPRAZOLE. [Concomitant]
     Active Substance: LANSOPRAZOLE
     Indication: GASTRITIS
     Dosage: UNK
  4. NORMIX [Concomitant]
     Active Substance: RIFAXIMIN
     Indication: DIVERTICULITIS
     Dosage: UNK
  5. SIMESTAT [Concomitant]
     Active Substance: ROSUVASTATIN CALCIUM
     Indication: PRODUCT USED FOR UNKNOWN INDICATION
     Dosage: UNK
  6. CEFTRIAXONE. [Suspect]
     Active Substance: CEFTRIAXONE
     Indication: PNEUMONIA
     Dosage: 1 G, UNK
     Dates: start: 20170315, end: 20170316
  7. AZITHROMYCIN ANHYDROUS. [Suspect]
     Active Substance: AZITHROMYCIN ANHYDROUS
     Indication: PNEUMONIA
     Dosage: 500 MG, UNK
     Dates: start: 20170315, end: 20170316
  8. CARDURA [Concomitant]
     Active Substance: DOXAZOSIN MESYLATE
     Indication: HYPERTENSION
     Dosage: UNK

REACTIONS (3)
  - Vomiting [Unknown]
  - Circulatory collapse [Unknown]
  - Hypotension [Unknown]

NARRATIVE: CASE EVENT DATE: 20170316
